FAERS Safety Report 8806203 (Version 1)
Quarter: 2012Q4

REPORT INFORMATION
  Report Type: 
  Country: US (occurrence: US)
  Receive Date: 20120925
  Receipt Date: 20120925
  Transmission Date: 20130627
  Serious: Yes (Other)
  Sender: FDA-Public Use
  Company Number: PHEH2012US018600

PATIENT
  Sex: Male

DRUGS (1)
  1. TASIGNA [Suspect]
     Dosage: 800 mg, UNK

REACTIONS (5)
  - Asthma [Unknown]
  - Cough [Unknown]
  - Rash generalised [Unknown]
  - Headache [Unknown]
  - Fatigue [Unknown]
